FAERS Safety Report 10003317 (Version 1)
Quarter: 2014Q1

REPORT INFORMATION
  Report Type: Spontaneous
  Country: US (occurrence: US)
  Receive Date: 20140312
  Receipt Date: 20140312
  Transmission Date: 20141002
  Serious: Yes (Other)
  Sender: FDA-Public Use
  Company Number: US-GLAXOSMITHKLINE-A1057101A

PATIENT
  Age: 46 Year
  Sex: Male
  Weight: 65.5 kg

DRUGS (3)
  1. BENLYSTA [Suspect]
     Indication: SYSTEMIC LUPUS ERYTHEMATOSUS
     Dosage: 10MGK MONTHLY
     Route: 042
     Dates: start: 20120424, end: 20130730
  2. PLAQUENIL [Concomitant]
  3. PREDNISONE [Concomitant]
     Indication: ARTHRITIS

REACTIONS (3)
  - Angioedema [Recovered/Resolved]
  - Laryngeal oedema [Recovered/Resolved]
  - Face oedema [Recovered/Resolved]
